FAERS Safety Report 20020710 (Version 1)
Quarter: 2021Q4

REPORT INFORMATION
  Report Type: Spontaneous
  Country: None (occurrence: CN)
  Receive Date: 20211101
  Receipt Date: 20211101
  Transmission Date: 20220303
  Serious: Yes (Hospitalization)
  Sender: FDA-Public Use
  Company Number: CN-Acella Pharmaceuticals, LLC-2121287

PATIENT
  Age: 67 Year
  Sex: Male
  Weight: 77.5 kg

DRUGS (8)
  1. NIFEDIPINE [Suspect]
     Active Substance: NIFEDIPINE
     Indication: Hypertension
     Route: 065
  2. LOSARTAN [Concomitant]
     Active Substance: LOSARTAN
     Route: 065
  3. ACARBOSE [Concomitant]
     Active Substance: ACARBOSE
     Route: 065
  4. INSULIN NOS [Concomitant]
     Active Substance: INSULIN NOS
     Route: 058
  5. MIDAZOLAM [Concomitant]
     Active Substance: MIDAZOLAM
     Route: 042
  6. SUFENTANIL CITRATE [Concomitant]
     Active Substance: SUFENTANIL CITRATE
     Route: 042
  7. PROPOFOL [Concomitant]
     Active Substance: PROPOFOL
     Route: 042
  8. VECURONIUM [Concomitant]
     Active Substance: VECURONIUM BROMIDE
     Route: 042

REACTIONS (5)
  - Prostatic specific antigen increased [Unknown]
  - Prostate cancer [Unknown]
  - Heart rate increased [Recovered/Resolved]
  - Heart rate decreased [Recovered/Resolved]
  - Blood pressure decreased [Recovered/Resolved]
